FAERS Safety Report 9469393 (Version 1)
Quarter: 2013Q3

REPORT INFORMATION
  Report Type: Spontaneous
  Country: US (occurrence: US)
  Receive Date: 20130821
  Receipt Date: 20130821
  Transmission Date: 20140515
  Serious: Yes (Hospitalization, Other)
  Sender: FDA-Public Use
  Company Number: US-MERCK-1308USA008051

PATIENT
  Sex: Female

DRUGS (1)
  1. INVANZ [Suspect]

REACTIONS (1)
  - Convulsion [Unknown]
